FAERS Safety Report 7210479-8 (Version None)
Quarter: 2011Q1

REPORT INFORMATION
  Report Type: 
  Country: None (occurrence: None)
  Receive Date: 20110103
  Receipt Date: 20110103
  Transmission Date: 20110831
  Serious: Yes (Other)
  Sender: FDA-Public Use
  Company Number: None

PATIENT
  Age: 62 Year
  Sex: Female
  Weight: 73.4827 kg

DRUGS (2)
  1. VENLAFAXINE [Suspect]
     Indication: ANXIETY
     Dosage: 75 MG 1X DAY PO
     Route: 048
     Dates: start: 20101101, end: 20101231
  2. VENLAFAXINE [Suspect]
     Indication: DEPRESSION
     Dosage: 75 MG 1X DAY PO
     Route: 048
     Dates: start: 20101101, end: 20101231

REACTIONS (20)
  - DIARRHOEA [None]
  - VOMITING [None]
  - FALL [None]
  - IMPAIRED DRIVING ABILITY [None]
  - DECREASED INTEREST [None]
  - PAIN IN EXTREMITY [None]
  - GASTROINTESTINAL PAIN [None]
  - HEADACHE [None]
  - CRYING [None]
  - AMNESIA [None]
  - DYSPNOEA [None]
  - LISTLESS [None]
  - HYPERSOMNIA [None]
  - PRODUCT SUBSTITUTION ISSUE [None]
  - DIZZINESS [None]
  - CONFUSIONAL STATE [None]
  - WITHDRAWAL SYNDROME [None]
  - PAIN [None]
  - EXERCISE TOLERANCE DECREASED [None]
  - DYSSTASIA [None]
